FAERS Safety Report 24360880 (Version 1)
Quarter: 2024Q3

REPORT INFORMATION
  Report Type: Spontaneous
  Country: ID (occurrence: ID)
  Receive Date: 20240925
  Receipt Date: 20240925
  Transmission Date: 20241016
  Serious: Yes (Life-Threatening, Hospitalization)
  Sender: ACCORD
  Company Number: ID-MLMSERVICE-20240909-PI184647-00145-1

PATIENT
  Age: 27 Year
  Sex: Female

DRUGS (35)
  1. DEXMEDETOMIDINE HYDROCHLORIDE [Suspect]
     Active Substance: DEXMEDETOMIDINE HYDROCHLORIDE
     Indication: Neuralgia
     Dosage: UP TO 0.8 MICROGRAMS/KILOGRAM BODY WEIGHT/HOUR-HIGH DOSES
  2. CELECOXIB [Suspect]
     Active Substance: CELECOXIB
     Indication: Neuralgia
     Dosage: HIGH DOSES
  3. FENTANYL [Suspect]
     Active Substance: FENTANYL\FENTANYL CITRATE
     Indication: Neuralgia
     Dosage: INTERMITTENT-HIGH DOSES
  4. KETAMINE [Suspect]
     Active Substance: KETAMINE
     Indication: Sedative therapy
     Dosage: INTERMITTENT-HIGH DOSES
  5. PREGABALIN [Suspect]
     Active Substance: PREGABALIN
     Indication: Neuralgia
     Dosage: HIGH DOSES
  6. PROPOFOL [Suspect]
     Active Substance: PROPOFOL
     Indication: Sedative therapy
     Dosage: UP TO 100 MG/HOUR-HIGH DOSES
  7. MORPHINE [Suspect]
     Active Substance: MORPHINE
     Indication: Neuralgia
     Dosage: INTERMITTENT-HIGH DOSES
  8. TRAMADOL [Suspect]
     Active Substance: TRAMADOL\TRAMADOL HYDROCHLORIDE
     Indication: Back pain
     Dosage: HIGH DOSES
  9. DULOXETINE [Concomitant]
     Active Substance: DULOXETINE
     Indication: Back pain
  10. MEROPENEM [Concomitant]
     Active Substance: MEROPENEM
     Indication: Meningitis bacterial
  11. METHYLPREDNISOLONE [Concomitant]
     Active Substance: METHYLPREDNISOLONE
     Indication: Meningitis bacterial
  12. RISPERIDONE [Concomitant]
     Active Substance: RISPERIDONE
     Indication: Back pain
  13. MORPHINE [Suspect]
     Active Substance: MORPHINE
     Indication: Sedative therapy
     Dosage: INTERMITTENT-HIGH DOSES
  14. DULOXETINE [Concomitant]
     Active Substance: DULOXETINE
     Indication: Neuralgia
  15. RISPERIDONE [Concomitant]
     Active Substance: RISPERIDONE
     Indication: Neuralgia
  16. DEXMEDETOMIDINE HYDROCHLORIDE [Suspect]
     Active Substance: DEXMEDETOMIDINE HYDROCHLORIDE
     Indication: Sedative therapy
     Dosage: UP TO 0.8 MICROGRAMS/KILOGRAM BODY WEIGHT/HOUR-HIGH DOSES
  17. MORPHINE [Suspect]
     Active Substance: MORPHINE
     Indication: Breakthrough pain
     Dosage: INTERMITTENT-HIGH DOSES
  18. MORPHINE [Suspect]
     Active Substance: MORPHINE
     Indication: Back pain
     Dosage: INTERMITTENT-HIGH DOSES
  19. MORPHINE [Suspect]
     Active Substance: MORPHINE
     Indication: Neuralgia
     Dosage: HIGH DOSES-15 MG OVER 24 HOURS
  20. MORPHINE [Suspect]
     Active Substance: MORPHINE
     Indication: Sedative therapy
     Dosage: HIGH DOSES-15 MG OVER 24 HOURS
  21. MORPHINE [Suspect]
     Active Substance: MORPHINE
     Indication: Breakthrough pain
     Dosage: HIGH DOSES-15 MG OVER 24 HOURS
  22. MORPHINE [Suspect]
     Active Substance: MORPHINE
     Indication: Back pain
     Dosage: HIGH DOSES-15 MG OVER 24 HOURS
  23. TRAMADOL [Suspect]
     Active Substance: TRAMADOL\TRAMADOL HYDROCHLORIDE
     Indication: Neuralgia
     Dosage: HIGH DOSES
  24. CELECOXIB [Suspect]
     Active Substance: CELECOXIB
     Indication: Back pain
     Dosage: HIGH DOSES
  25. PROPOFOL [Suspect]
     Active Substance: PROPOFOL
     Indication: Neuralgia
     Dosage: UP TO 100 MG/HOUR-HIGH DOSES
  26. FENTANYL [Suspect]
     Active Substance: FENTANYL\FENTANYL CITRATE
     Indication: Back pain
     Dosage: INTERMITTENT-HIGH DOSES
  27. KETAMINE [Suspect]
     Active Substance: KETAMINE
     Indication: Back pain
     Dosage: INTERMITTENT-HIGH DOSES
  28. PREGABALIN [Suspect]
     Active Substance: PREGABALIN
     Indication: Sedative therapy
     Dosage: HIGH DOSES
  29. DEXMEDETOMIDINE HYDROCHLORIDE [Suspect]
     Active Substance: DEXMEDETOMIDINE HYDROCHLORIDE
     Indication: Back pain
     Dosage: UP TO 0.8 MICROGRAMS/KILOGRAM BODY WEIGHT/HOUR-HIGH DOSES
  30. PREGABALIN [Suspect]
     Active Substance: PREGABALIN
     Indication: Back pain
     Dosage: HIGH DOSES
  31. KETAMINE [Suspect]
     Active Substance: KETAMINE
     Indication: Neuralgia
     Dosage: INTERMITTENT-HIGH DOSES
  32. FENTANYL [Suspect]
     Active Substance: FENTANYL\FENTANYL CITRATE
     Indication: Sedative therapy
     Dosage: INTERMITTENT-HIGH DOSES
  33. PROPOFOL [Suspect]
     Active Substance: PROPOFOL
     Indication: Back pain
     Dosage: UP TO 100 MG/HOUR-HIGH DOSES
  34. CELECOXIB [Suspect]
     Active Substance: CELECOXIB
     Indication: Sedative therapy
     Dosage: HIGH DOSES
  35. TRAMADOL [Suspect]
     Active Substance: TRAMADOL\TRAMADOL HYDROCHLORIDE
     Indication: Sedative therapy
     Dosage: HIGH DOSES

REACTIONS (2)
  - Sedation complication [Unknown]
  - Altered state of consciousness [Unknown]
